FAERS Safety Report 26011020 (Version 1)
Quarter: 2025Q4

REPORT INFORMATION
  Report Type: Spontaneous
  Country: US (occurrence: US)
  Receive Date: 20251107
  Receipt Date: 20251107
  Transmission Date: 20260118
  Serious: No
  Sender: MYLAN
  Company Number: US-MYLANLABS-2025M1090562

PATIENT
  Sex: Female
  Weight: 102.06 kg

DRUGS (2)
  1. BREYNA [Suspect]
     Active Substance: BUDESONIDE\FORMOTEROL FUMARATE
     Indication: Asthma
     Dosage: 320 PER 9 MICROGRAM, BID (TWO PUFFS IN THE MORNING AND TWO PUFFS IN THE NIGHT)
     Dates: start: 202510
  2. BREYNA [Suspect]
     Active Substance: BUDESONIDE\FORMOTEROL FUMARATE
     Indication: Chronic obstructive pulmonary disease

REACTIONS (4)
  - Asthma [Unknown]
  - Illness [Unknown]
  - Incorrect dose administered by device [Unknown]
  - Incorrect dose administered [Unknown]
